FAERS Safety Report 6314802-8 (Version None)
Quarter: 2009Q3

REPORT INFORMATION
  Report Type: 
  Country: None (occurrence: None)
  Receive Date: 20090817
  Receipt Date: 20090806
  Transmission Date: 20100115
  Serious: Yes (Hospitalization)
  Sender: FDA-Public Use
  Company Number: 001217

PATIENT
  Sex: Male

DRUGS (9)
  1. NEUPRO [Suspect]
     Indication: PARKINSON'S DISEASE
     Dosage: (10 MG 1X/24 HOURS TRANSDERMAL)
     Route: 062
     Dates: start: 20070401, end: 20090313
  2. MADOPAR /00349201/ [Concomitant]
  3. COMTESS [Concomitant]
  4. NACOM [Concomitant]
  5. PK-MERZ /00055903/ [Concomitant]
  6. SEROQUEL [Concomitant]
  7. PANTOZOL /01263202/ [Concomitant]
  8. IBUPROFEN [Concomitant]
  9. FENTANYL [Concomitant]

REACTIONS (1)
  - DERMATITIS ALLERGIC [None]
